FAERS Safety Report 9022569 (Version 1)
Quarter: 2013Q1

REPORT INFORMATION
  Report Type: Spontaneous
  Country: US (occurrence: US)
  Receive Date: 20130118
  Receipt Date: 20130118
  Transmission Date: 20140127
  Serious: No
  Sender: FDA-Public Use
  Company Number: US-GLAXOSMITHKLINE-A0982354A

PATIENT
  Age: 79 Year
  Sex: Male

DRUGS (3)
  1. PROMACTA [Suspect]
     Dosage: 25MG UNKNOWN
     Route: 065
  2. METOPROLOL TARTRATE [Concomitant]
  3. FINASTERIDE [Concomitant]

REACTIONS (1)
  - Laboratory test abnormal [Unknown]
